FAERS Safety Report 9640379 (Version 1)
Quarter: 2013Q4

REPORT INFORMATION
  Report Type: Spontaneous
  Country: US (occurrence: None)
  Receive Date: 20131022
  Receipt Date: 20131022
  Transmission Date: 20140711
  Serious: No
  Sender: FDA-Public Use
  Company Number: None

PATIENT
  Age: 61 Year
  Sex: Female
  Weight: 90.27 kg

DRUGS (19)
  1. DOXYCYCLINE [Suspect]
     Indication: SINUSITIS
     Route: 048
     Dates: start: 20111111
  2. ACYCLOVIR [Suspect]
     Indication: INFECTION PROPHYLAXIS
  3. ALENDRONATE SODIUM [Suspect]
     Indication: OSTEOPOROSIS
  4. ALLOPURINOL [Suspect]
     Indication: OSTEOPOROSIS
  5. BACTRIM DS [Suspect]
     Indication: INFECTION PROPHYLAXIS
     Dosage: TAKE ONE ON SATURDAY AND ONE ON SUNDAY
  6. CALCIUM + D [Suspect]
     Indication: OSTEOPOROSIS
  7. CLONAZEPAM [Suspect]
     Indication: RESTLESS LEGS SYNDROME
  8. COQ-10 [Suspect]
     Indication: VITAMIN SUPPLEMENTATION
  9. DEMEROL [Suspect]
     Indication: PAIN
     Dosage: USE DURING CANCER TREATMENT
  10. DHEA [Suspect]
     Indication: VITAMIN SUPPLEMENTATION
  11. FISH OIL [Suspect]
     Indication: VITAMIN SUPPLEMENTATION
  12. BIOTIN [Suspect]
     Indication: VITAMIN SUPPLEMENTATION
  13. LEVOTHYROXINE [Suspect]
     Indication: HYPOTHYROIDISM
     Dosage: TAKE ONE BEFORE BREAKFAST
  14. LORATADINE [Suspect]
     Indication: MULTIPLE ALLERGIES
  15. MULTIVITAMIN [Suspect]
     Indication: VITAMIN SUPPLEMENTATION
  16. SIMVASTATIN [Suspect]
     Indication: BLOOD CHOLESTEROL INCREASED
     Dosage: TAKE ONE EVERY EVENING
  17. STOOL SOFTENER [Suspect]
     Indication: CONSTIPATION
  18. VENLAFAXINE [Suspect]
     Indication: DEPRESSION
  19. VENLAFAXINE [Suspect]
     Indication: ANXIETY

REACTIONS (1)
  - Rash [None]
